FAERS Safety Report 17530293 (Version 2)
Quarter: 2020Q2

REPORT INFORMATION
  Report Type: Report from Study
  Country: TH (occurrence: TH)
  Receive Date: 20200311
  Receipt Date: 20200407
  Transmission Date: 20200713
  Serious: Yes (Hospitalization)
  Sender: FDA-Public Use
  Company Number: TH-BAYER-2020-040457

PATIENT
  Age: 55 Year
  Sex: Male

DRUGS (1)
  1. STIVARGA [Suspect]
     Active Substance: REGORAFENIB
     Indication: COLORECTAL CANCER
     Dosage: 40 MG, UNK
     Route: 048
     Dates: start: 20200108, end: 20200205

REACTIONS (4)
  - Eating disorder [None]
  - Abdominal pain upper [Recovering/Resolving]
  - Vomiting [None]
  - Renal disorder [None]
